FAERS Safety Report 8813716 (Version 4)
Quarter: 2012Q4

REPORT INFORMATION
  Report Type: Report from Study
  Country: US (occurrence: US)
  Receive Date: 20120928
  Receipt Date: 20121204
  Transmission Date: 20130627
  Serious: Yes (Hospitalization)
  Sender: FDA-Public Use
  Company Number: US-ROCHE-1138167

PATIENT
  Age: 53 Year
  Sex: Male

DRUGS (8)
  1. ERLOTINIB [Suspect]
     Indication: HEPATIC NEOPLASM MALIGNANT
     Route: 048
     Dates: start: 20120922
  2. ERLOTINIB [Suspect]
     Route: 048
     Dates: start: 20121115
  3. BEVACIZUMAB [Suspect]
     Indication: HEPATIC NEOPLASM MALIGNANT
     Route: 042
     Dates: start: 20120920
  4. BEVACIZUMAB [Suspect]
     Route: 042
     Dates: start: 20121115
  5. DIOVAN [Concomitant]
  6. NEXIUM [Concomitant]
  7. ZOLPIDEM [Concomitant]
  8. MAGNESIUM OXIDE [Concomitant]

REACTIONS (2)
  - Hip fracture [Unknown]
  - Musculoskeletal pain [Unknown]
